FAERS Safety Report 5405785-3 (Version None)
Quarter: 2007Q3

REPORT INFORMATION
  Report Type: 
  Country: None (occurrence: None)
  Receive Date: 20070806
  Receipt Date: 20070725
  Transmission Date: 20080115
  Serious: Yes (Hospitalization)
  Sender: FDA-Public Use
  Company Number: NSADSS2003018747

PATIENT
  Sex: Female
  Weight: 28.3 kg

DRUGS (5)
  1. REMICADE [Suspect]
     Indication: CROHN'S DISEASE
     Route: 041
  2. CIPROFLOXACIN [Concomitant]
     Route: 048
  3. FLAGYL [Concomitant]
     Route: 042
  4. SOLU-MEDROL [Concomitant]
     Route: 042
  5. RED BLOOD CELLS [Concomitant]

REACTIONS (5)
  - CEREBRAL INFARCTION [None]
  - COLITIS [None]
  - DEHYDRATION [None]
  - SUPERIOR SAGITTAL SINUS THROMBOSIS [None]
  - TRANSVERSE SINUS THROMBOSIS [None]
